FAERS Safety Report 9725761 (Version 2)
Quarter: 2013Q4

REPORT INFORMATION
  Report Type: Spontaneous
  Country: US (occurrence: None)
  Receive Date: 20131118
  Receipt Date: 20131202
  Transmission Date: 20140711
  Serious: Yes (Other)
  Sender: FDA-Public Use
  Company Number: US-145493

PATIENT
  Age: 28 Year
  Sex: Female
  Weight: 94.1 kg

DRUGS (1)
  1. WINRHO SDF LIQUID [Suspect]
     Indication: IMMUNE THROMBOCYTOPENIC PURPURA
     Dosage: 51 UG/KG QD INTRAVENOUS (NOT OTHERWISE SPECIFIED)?
     Route: 042
     Dates: start: 201307, end: 20130722

REACTIONS (4)
  - Chromaturia [None]
  - Urine bilirubin increased [None]
  - Haemolysis [None]
  - Haemoglobin decreased [None]
